FAERS Safety Report 8030711-0 (Version None)
Quarter: 2012Q1

REPORT INFORMATION
  Report Type: 
  Country: None (occurrence: None)
  Receive Date: 20120109
  Receipt Date: 20120103
  Transmission Date: 20120608
  Serious: Yes (Other)
  Sender: FDA-Public Use
  Company Number: PHEH2012US000489

PATIENT
  Sex: Female

DRUGS (9)
  1. JANUMET [Concomitant]
     Dosage: 1 DF(50/1000), BID
  2. CLARITIN [Concomitant]
     Dosage: 10 MG, QD
  3. LASIX [Concomitant]
     Dosage: 20 MG, BID
  4. EXFORGE HCT [Suspect]
     Dosage: ONCE A DAY
  5. NASONEX [Concomitant]
     Dosage: 50 UG, PRN
  6. GLUCOTROL XL [Concomitant]
     Dosage: 10 MG, BID
  7. TOPROL-XL [Concomitant]
     Dosage: 50 MG, QD
  8. ALBUTEROL SULFATE [Concomitant]
     Dosage: 2 PUFFWS AS NEEDED
  9. NEXIUM [Concomitant]
     Dosage: 40 MG, QD

REACTIONS (5)
  - BLOOD PRESSURE INCREASED [None]
  - ASTHMA [None]
  - HEADACHE [None]
  - SINUSITIS [None]
  - EYE PAIN [None]
